FAERS Safety Report 8281410-1 (Version None)
Quarter: 2012Q2

REPORT INFORMATION
  Report Type: 
  Country: None (occurrence: None)
  Receive Date: 20120411
  Receipt Date: 20120411
  Transmission Date: 20120825
  Serious: Yes (Hospitalization)
  Sender: FDA-Public Use
  Company Number: None

PATIENT
  Sex: Female
  Weight: 89 kg

DRUGS (5)
  1. BUSULFAN [Suspect]
     Dosage: 716 MG
  2. CYCLOSPORINE [Suspect]
     Dosage: 4175 MG
  3. METHOTREXATE [Suspect]
     Dosage: 90 MG
  4. ANTI-THYMOCYTE GLOBULIN NOS [Suspect]
     Dosage: 375 MG
  5. CYCLOPHOSPHAMIDE [Suspect]
     Dosage: 12640 MG

REACTIONS (4)
  - ACUTE RESPIRATORY FAILURE [None]
  - HAEMOPTYSIS [None]
  - PNEUMONIA [None]
  - PULMONARY OEDEMA [None]
